FAERS Safety Report 4831696-8 (Version None)
Quarter: 2005Q4

REPORT INFORMATION
  Report Type: 
  Country: None (occurrence: None)
  Receive Date: 20051116
  Receipt Date: 20051104
  Transmission Date: 20060501
  Serious: Yes (Hospitalization)
  Sender: FDA-Public Use
  Company Number: 505#3#2005-01866

PATIENT
  Age: 77 Year
  Sex: Female

DRUGS (5)
  1. SIMCORA 40 (CHE) (SIMVASTATIN) [Suspect]
     Indication: DYSLIPIDAEMIA
     Dosage: 40 MILLIGRAM P.O.
     Route: 048
     Dates: start: 20050329
  2. MARCUMAR [Suspect]
     Indication: BIPOLAR DISORDER
     Dosage: 3 MG P.O.
     Route: 048
     Dates: start: 20001201
  3. CITALOPRAM (CITALOPRAM) [Suspect]
     Dosage: 20 MG P.O.
     Route: 048
     Dates: start: 20001201
  4. TENORMIN [Concomitant]
  5. DYRENIUM (TRIAMTERENE) [Concomitant]

REACTIONS (2)
  - DRUG INTERACTION [None]
  - INTERNATIONAL NORMALISED RATIO INCREASED [None]
